FAERS Safety Report 9244416 (Version 3)
Quarter: 2013Q4

REPORT INFORMATION
  Report Type: Spontaneous
  Country: JP (occurrence: JP)
  Receive Date: 20130422
  Receipt Date: 20131002
  Transmission Date: 20140711
  Serious: Yes (Hospitalization)
  Sender: FDA-Public Use
  Company Number: JP-JNJFOC-20130410081

PATIENT
  Age: 33 Year
  Sex: Female
  Weight: 64 kg

DRUGS (8)
  1. REMICADE [Suspect]
     Indication: COLITIS ULCERATIVE
     Route: 042
     Dates: start: 20130621
  2. REMICADE [Suspect]
     Indication: COLITIS ULCERATIVE
     Route: 042
     Dates: start: 20130816
  3. REMICADE [Suspect]
     Indication: COLITIS ULCERATIVE
     Route: 042
     Dates: start: 20130426
  4. REMICADE [Suspect]
     Indication: COLITIS ULCERATIVE
     Dosage: 17TH INFUSION
     Route: 042
     Dates: start: 20130301
  5. REMICADE [Suspect]
     Indication: COLITIS ULCERATIVE
     Dosage: 4 DOSES IN TOTAL
     Route: 042
     Dates: start: 20120914
  6. REMICADE [Suspect]
     Indication: COLITIS ULCERATIVE
     Route: 042
     Dates: start: 20100917, end: 20120601
  7. PENTASA [Concomitant]
     Indication: COLITIS ULCERATIVE
     Route: 048
  8. LAC-B [Concomitant]
     Indication: COLITIS ULCERATIVE
     Route: 048

REACTIONS (3)
  - Cholelithiasis [Recovered/Resolved]
  - Cholecystitis [Unknown]
  - Exposure during pregnancy [Unknown]
